FAERS Safety Report 6067779-7 (Version None)
Quarter: 2009Q1

REPORT INFORMATION
  Report Type: 
  Country: None (occurrence: None)
  Receive Date: 20090205
  Receipt Date: 20090121
  Transmission Date: 20090719
  Serious: Yes (Other)
  Sender: FDA-Public Use
  Company Number: FR-GENENTECH-276386

PATIENT
  Sex: Female

DRUGS (4)
  1. MABTHERA [Suspect]
     Indication: RHEUMATOID ARTHRITIS
     Dosage: 1 G, UNK
     Route: 042
     Dates: start: 20080807, end: 20080822
  2. CACIT D3 [Suspect]
     Indication: OSTEOPOROSIS
     Route: 048
  3. LEVOTHYROX [Suspect]
     Indication: HYPOTHYROIDISM
     Route: 048
  4. VITAMIN D [Suspect]
     Indication: VITAMIN D DEFICIENCY
     Dosage: 0.033 UNK, 1/MONTH
     Route: 065
     Dates: start: 20080903

REACTIONS (1)
  - KERATITIS HERPETIC [None]
